FAERS Safety Report 5848112-X (Version None)
Quarter: 2008Q3

REPORT INFORMATION
  Report Type: 
  Country: None (occurrence: None)
  Receive Date: 20080814
  Receipt Date: 20080814
  Transmission Date: 20090109
  Serious: Yes (Hospitalization)
  Sender: FDA-Public Use
  Company Number: None

PATIENT
  Age: 56 Year
  Sex: Male
  Weight: 153.09 kg

DRUGS (1)
  1. POTASSIUM PHOSPHATES [Suspect]
     Indication: DEHYDRATION
     Dosage: 15MMOL IN SALINE @ 150ML PER HOUR IV
     Route: 042
     Dates: start: 20080606, end: 20080606

REACTIONS (1)
  - HYPERKALAEMIA [None]
